FAERS Safety Report 5756041-5 (Version None)
Quarter: 2008Q2

REPORT INFORMATION
  Report Type: 
  Country: None (occurrence: None)
  Receive Date: 20080602
  Receipt Date: 20080523
  Transmission Date: 20081010
  Serious: Yes (Hospitalization, Other)
  Sender: FDA-Public Use
  Company Number: PHHY2008JP08042

PATIENT
  Age: 58 Year
  Sex: Female

DRUGS (10)
  1. LUDIOMIL [Suspect]
     Indication: BIPOLAR DISORDER
     Dosage: 75 MG/DAY
     Route: 048
  2. LUDIOMIL [Suspect]
     Dosage: 75 MG/DAY
     Route: 048
  3. LUDIOMIL [Suspect]
     Dosage: 100 MG/DAY
     Route: 048
  4. LUDIOMIL [Suspect]
     Dosage: 50 MG/DAY
     Route: 048
  5. RISPERIDONE [Concomitant]
  6. QUETIAPINE FUMARATE [Concomitant]
     Indication: DYSAESTHESIA
     Dosage: 150 MG
     Route: 048
  7. OLANZAPINE [Concomitant]
     Indication: DYSAESTHESIA
     Dosage: 5 MG
     Route: 048
  8. FLUVOXAMINE MALEATE [Concomitant]
     Indication: BIPOLAR DISORDER
     Dosage: 100 MG/DAY
     Route: 048
  9. SULPIRIDE [Concomitant]
     Indication: ANOREXIA
     Dosage: 150 MG
     Route: 048
  10. SULPIRIDE [Concomitant]
     Dosage: 300 MG
     Route: 048

REACTIONS (19)
  - ANXIETY [None]
  - ASTHENIA [None]
  - DECREASED APPETITE [None]
  - DEPRESSED MOOD [None]
  - DRUG INEFFECTIVE [None]
  - EATING DISORDER [None]
  - FEELING ABNORMAL [None]
  - GASTROINTESTINAL TUBE INSERTION [None]
  - IRRITABILITY [None]
  - MASKED FACIES [None]
  - MENTAL IMPAIRMENT [None]
  - MOVEMENT DISORDER [None]
  - ORAL DISCOMFORT [None]
  - ORAL PAIN [None]
  - PARAESTHESIA ORAL [None]
  - PARKINSONISM [None]
  - RESTLESSNESS [None]
  - SALIVARY HYPERSECRETION [None]
  - SUICIDAL IDEATION [None]
